FAERS Safety Report 7130750-8 (Version None)
Quarter: 2010Q4

REPORT INFORMATION
  Report Type: 
  Country: None (occurrence: None)
  Receive Date: 20101201
  Receipt Date: 20101118
  Transmission Date: 20110411
  Serious: Yes (Hospitalization)
  Sender: FDA-Public Use
  Company Number: US-CELGENEUS-163-21880-10112429

PATIENT
  Age: 72 Year
  Sex: Male
  Weight: 70.824 kg

DRUGS (2)
  1. REVLIMID [Suspect]
     Indication: MULTIPLE MYELOMA
     Route: 048
     Dates: start: 20100827, end: 20100909
  2. REVLIMID [Suspect]
     Route: 048
     Dates: start: 20100927, end: 20101011

REACTIONS (10)
  - ANAEMIA [None]
  - ATELECTASIS [None]
  - BRONCHITIS [None]
  - DEHYDRATION [None]
  - DIARRHOEA [None]
  - HYPERKALAEMIA [None]
  - HYPONATRAEMIA [None]
  - HYPOTENSION [None]
  - PYREXIA [None]
  - THROMBOCYTOSIS [None]
